FAERS Safety Report 7622893-7 (Version None)
Quarter: 2011Q3

REPORT INFORMATION
  Report Type: 
  Country: None (occurrence: None)
  Receive Date: 20110720
  Receipt Date: 20110711
  Transmission Date: 20111222
  Serious: Yes (Death, Other)
  Sender: FDA-Public Use
  Company Number: US-BAYER-200940327NA

PATIENT
  Age: 67 Year
  Sex: Male
  Weight: 77 kg

DRUGS (27)
  1. NITROGLYCERIN [Concomitant]
     Dosage: UNK
     Dates: start: 20050817
  2. CEFAZOLIN [Concomitant]
     Dosage: 2000 MG, UNK
     Route: 042
     Dates: start: 20050928, end: 20050928
  3. SUFENTANIL CITRATE [Concomitant]
     Dosage: 200 MCG
     Route: 042
     Dates: start: 20050928, end: 20050928
  4. PROTAMINE SULFATE [Concomitant]
     Dosage: 500 MG, UNK
     Route: 042
     Dates: start: 20050928, end: 20050928
  5. ISOSORBIDE MONONITRATE [Concomitant]
     Dosage: UNK
     Dates: start: 20050819
  6. GLIPIZIDE [Concomitant]
     Dosage: UNK
     Dates: start: 20050714
  7. PLAVIX [Concomitant]
     Dosage: UNK
     Dates: start: 20050815
  8. REGULAR INSULIN [Concomitant]
     Dosage: 4 U, UNK
     Route: 042
     Dates: start: 20050928, end: 20050928
  9. TRASYLOL [Suspect]
     Indication: CORONARY ARTERY BYPASS
     Dosage: UNK
     Route: 042
     Dates: start: 20050928
  10. LIPITOR [Concomitant]
     Dosage: UNK
     Dates: start: 20050203
  11. LISINOPRIL [Concomitant]
     Dosage: UNK
     Dates: start: 20050615
  12. METOPROLOL TARTRATE [Concomitant]
     Dosage: UNK
     Dates: start: 20050815
  13. LOVASTATIN [Concomitant]
     Dosage: UNK
     Dates: start: 20050820
  14. NABUMETONE [Concomitant]
     Dosage: UNK
     Dates: start: 20050820
  15. MIDAZOLAM HCL [Concomitant]
     Dosage: 4 MG, UNK
     Route: 042
     Dates: start: 20050928, end: 20050928
  16. PANCURONIUM [Concomitant]
     Dosage: 20 MG, UNK
     Route: 042
     Dates: start: 20050928, end: 20050928
  17. HEPARIN [Concomitant]
     Dosage: 35000 U, UNK
     Route: 042
     Dates: start: 20050928, end: 20050928
  18. NOREPINEPHRINE BITARTRATE [Concomitant]
     Dosage: 120 MCG
     Route: 042
     Dates: start: 20050928, end: 20050928
  19. ALBUTEROL SULFATE AUTOHALER [Concomitant]
     Dosage: 20 DOSE
     Route: 042
     Dates: start: 20050928, end: 20050928
  20. DILANTIN [Concomitant]
     Dosage: UNK
     Dates: start: 20050204
  21. NORVASC [Concomitant]
     Dosage: UNK
     Dates: start: 20050815
  22. PHENYLEPHRINE HCL [Concomitant]
     Dosage: 3120 MCG
     Route: 042
     Dates: start: 20050928, end: 20050928
  23. ATENOLOL [Concomitant]
     Dosage: UNK
     Dates: start: 20050811
  24. METOCLOPRAMIDE [Concomitant]
     Dosage: UNK
     Dates: start: 20050820
  25. NOVOLIN R [Concomitant]
     Dosage: UNK
     Dates: start: 20050714
  26. OMEPRAZOLE [Concomitant]
     Dosage: UNK
     Dates: start: 20050815
  27. AMINOCAPROIC ACID [Concomitant]
     Dosage: 5 G, UNK
     Route: 042
     Dates: start: 20050928, end: 20050928

REACTIONS (13)
  - RENAL FAILURE [None]
  - FEAR [None]
  - ANHEDONIA [None]
  - UNEVALUABLE EVENT [None]
  - EMOTIONAL DISTRESS [None]
  - STRESS [None]
  - PAIN [None]
  - MULTI-ORGAN FAILURE [None]
  - RENAL INJURY [None]
  - RENAL IMPAIRMENT [None]
  - INJURY [None]
  - DEATH [None]
  - ANXIETY [None]
